FAERS Safety Report 8264825-7 (Version None)
Quarter: 2012Q2

REPORT INFORMATION
  Report Type: 
  Country: None (occurrence: None)
  Receive Date: 20120406
  Receipt Date: 20120402
  Transmission Date: 20120825
  Serious: Yes (Death)
  Sender: FDA-Public Use
  Company Number: DE-ASTELLAS-2012EU002540

PATIENT
  Sex: Female
  Weight: 59 kg

DRUGS (10)
  1. FUROSEMIDE [Concomitant]
     Dosage: UNK
     Route: 065
     Dates: start: 20110715, end: 20110721
  2. LINEZOLID [Concomitant]
     Dosage: UNK
     Route: 065
     Dates: start: 20110715, end: 20110721
  3. MICAFUNGIN INJECTION [Suspect]
     Indication: GASTROINTESTINAL SURGERY
  4. DIPIDOLOR [Concomitant]
     Dosage: UNK
     Route: 065
     Dates: start: 20110715, end: 20110723
  5. PANTOZOL [Concomitant]
     Dosage: UNK
     Route: 065
     Dates: start: 20110715, end: 20110723
  6. MICAFUNGIN INJECTION [Suspect]
     Indication: BRONCHOPULMONARY ASPERGILLOSIS
     Dosage: 100 MG, UNKNOWN/D
     Route: 065
     Dates: start: 20110715, end: 20110722
  7. MICAFUNGIN INJECTION [Suspect]
     Indication: CANDIDIASIS
  8. MEROPENEM [Concomitant]
     Dosage: UNK
     Route: 065
     Dates: start: 20110715, end: 20110721
  9. MICAFUNGIN INJECTION [Suspect]
     Indication: INFECTIOUS DISEASE CARRIER
  10. MICAFUNGIN INJECTION [Suspect]
     Indication: ASPERGILLOSIS

REACTIONS (1)
  - CEREBRAL HAEMORRHAGE [None]
